FAERS Safety Report 15221124 (Version 1)
Quarter: 2018Q3

REPORT INFORMATION
  Report Type: Spontaneous
  Country: US (occurrence: US)
  Receive Date: 20180731
  Receipt Date: 20180731
  Transmission Date: 20181010
  Serious: Yes (Other)
  Sender: FDA-Public Use
  Company Number: US-CLOVIS ONCOLOGY-CLO-2018-000904

PATIENT
  Age: 44 Year
  Sex: Female

DRUGS (3)
  1. RUBRACA [Suspect]
     Active Substance: RUCAPARIB CAMSYLATE
     Indication: OVARIAN CANCER
     Dosage: 600 MG, BID
     Route: 048
     Dates: start: 20180616, end: 201806
  2. RUBRACA [Suspect]
     Active Substance: RUCAPARIB CAMSYLATE
     Dosage: 800 MG DAILY
     Route: 048
     Dates: start: 201806, end: 201806
  3. RUBRACA [Suspect]
     Active Substance: RUCAPARIB CAMSYLATE
     Dosage: 600 MG DAILY
     Route: 048
     Dates: start: 201806, end: 20180710

REACTIONS (9)
  - Decreased appetite [Unknown]
  - Pyrexia [Unknown]
  - Weight decreased [Unknown]
  - Pneumonia [Unknown]
  - Gastritis erosive [Unknown]
  - Abdominal pain [Unknown]
  - Pancreatitis [Unknown]
  - Dyspepsia [Recovering/Resolving]
  - Vomiting [Unknown]

NARRATIVE: CASE EVENT DATE: 2018
